FAERS Safety Report 8153787-9 (Version None)
Quarter: 2012Q1

REPORT INFORMATION
  Report Type: 
  Country: None (occurrence: None)
  Receive Date: 20120221
  Receipt Date: 20120215
  Transmission Date: 20120608
  Serious: Yes (Hospitalization)
  Sender: FDA-Public Use
  Company Number: JP-GLAXOSMITHKLINE-B0778162A

PATIENT
  Sex: Male
  Weight: 62 kg

DRUGS (3)
  1. RELENZA [Suspect]
     Indication: INFLUENZA
     Dosage: 20MG PER DAY
     Route: 055
     Dates: start: 20120118, end: 20120122
  2. AVAPRO [Concomitant]
     Indication: HYPERTENSION
     Route: 048
  3. ATELEC [Concomitant]
     Indication: HYPERTENSION
     Route: 048

REACTIONS (6)
  - APHAGIA [None]
  - APHASIA [None]
  - DISORIENTATION [None]
  - ALTERED STATE OF CONSCIOUSNESS [None]
  - AMNESIA [None]
  - ABNORMAL BEHAVIOUR [None]
